FAERS Safety Report 7990734-4 (Version None)
Quarter: 2011Q4

REPORT INFORMATION
  Report Type: 
  Country: None (occurrence: None)
  Receive Date: 20111219
  Receipt Date: 20111219
  Transmission Date: 20120403
  Serious: Yes (Life-Threatening, Hospitalization)
  Sender: FDA-Public Use
  Company Number: None

PATIENT
  Age: 10 Year
  Sex: Male
  Weight: 30.9 kg

DRUGS (1)
  1. TRILEPTAL [Suspect]
     Indication: ABNORMAL BEHAVIOUR

REACTIONS (5)
  - RASH GENERALISED [None]
  - URTICARIA [None]
  - PYREXIA [None]
  - TACHYCARDIA [None]
  - STEVENS-JOHNSON SYNDROME [None]
